FAERS Safety Report 6540633-X (Version None)
Quarter: 2010Q1

REPORT INFORMATION
  Report Type: 
  Country: None (occurrence: None)
  Receive Date: 20100118
  Receipt Date: 20100106
  Transmission Date: 20100710
  Serious: Yes (Hospitalization)
  Sender: FDA-Public Use
  Company Number: JP-ROCHE-676703

PATIENT
  Sex: Female
  Weight: 53 kg

DRUGS (16)
  1. TAMIFLU [Suspect]
     Indication: INFLUENZA
     Route: 048
     Dates: start: 20091216, end: 20091217
  2. CELLCEPT [Suspect]
     Indication: SYSTEMIC LUPUS ERYTHEMATOSUS
     Route: 048
     Dates: start: 20091028, end: 20091105
  3. CELLCEPT [Suspect]
     Route: 048
     Dates: start: 20091106
  4. MEDICON [Suspect]
     Indication: INFLUENZA
     Dosage: FORM: ORAL FORMULATION (NOT OTHERWISE SPECIFIED).
     Route: 048
     Dates: start: 20091216, end: 20091217
  5. BAKTAR [Suspect]
     Indication: PROPHYLAXIS
     Dosage: FORM: ORAL FORMULATION (NOT OTHERWISE SPECIFIED).
     Route: 048
     Dates: start: 20091013
  6. OMEPRAZOLE [Suspect]
     Indication: SYSTEMIC LUPUS ERYTHEMATOSUS
     Route: 048
  7. TAKEPRON [Suspect]
     Indication: PROPHYLAXIS
     Route: 048
     Dates: start: 20091001
  8. ITRIZOLE [Suspect]
     Indication: PROPHYLAXIS
     Route: 048
     Dates: start: 20091016
  9. PERSANTINE [Suspect]
     Indication: SYSTEMIC LUPUS ERYTHEMATOSUS
     Dosage: FORM: SUSTAINED RELEASE CAPSULE. DRUG NAME:PERSANTIN-L.
     Route: 048
     Dates: start: 20091016
  10. BONALON [Suspect]
     Indication: PROPHYLAXIS
     Route: 048
     Dates: start: 20091023
  11. CRESTOR [Suspect]
     Indication: HYPERCHOLESTEROLAEMIA
     Route: 048
     Dates: start: 20091027
  12. ZETIA [Suspect]
     Indication: HYPERCHOLESTEROLAEMIA
     Route: 048
     Dates: start: 20091129
  13. COCARL [Suspect]
     Indication: INFLUENZA
     Dosage: NOTE: TAKEN AS NEEDED
     Route: 048
     Dates: start: 20091216, end: 20091217
  14. MUCODYNE [Suspect]
     Indication: INFLUENZA
     Dosage: FORM: ORAL FORMULATION (NOT OTHERWISE SPECIFIED).
     Route: 048
     Dates: start: 20091216, end: 20091217
  15. METHYLPREDNISOLONE SODIUM SUCCINATE [Concomitant]
     Route: 041
     Dates: start: 20091001, end: 20091003
  16. PREDONINE [Concomitant]
     Dosage: NOTE: 50MG-25MG
     Route: 048
     Dates: start: 20091004

REACTIONS (2)
  - AGRANULOCYTOSIS [None]
  - PNEUMONIA [None]
